FAERS Safety Report 7589498 (Version 4)
Quarter: 2012Q4

REPORT INFORMATION
  Report Type: 
  Country: CA (occurrence: CA)
  Receive Date: 20100916
  Receipt Date: 20120920
  Transmission Date: 20130627
  Serious: Yes (Other)
  Sender: FDA-Public Use
  Company Number: CA-ROCHE-GNE306348

PATIENT
  Age: 7 Year
  Sex: Male

DRUGS (2)
  1. XOLAIR [Suspect]
     Indication: ASTHMA
     Dosage: 225 mg, Q2W
     Route: 058
     Dates: start: 20100212
  2. XOLAIR [Suspect]
     Route: 065

REACTIONS (7)
  - Asthma [Unknown]
  - Pyrexia [Recovered/Resolved]
  - Tonsillitis [Unknown]
  - Fatigue [Unknown]
  - Somnolence [Unknown]
  - Skin disorder [Unknown]
  - Injection site pain [Unknown]
